FAERS Safety Report 6032594-7 (Version None)
Quarter: 2009Q1

REPORT INFORMATION
  Report Type: 
  Country: None (occurrence: None)
  Receive Date: 20090109
  Receipt Date: 20090105
  Transmission Date: 20090719
  Serious: Yes (Other)
  Sender: FDA-Public Use
  Company Number: FR-ALLERGAN-0814842US

PATIENT
  Sex: Female
  Weight: 55 kg

DRUGS (3)
  1. BOTOX [Suspect]
     Indication: SKIN WRINKLING
     Dosage: UNK, SINGLE
     Route: 030
     Dates: start: 20080601, end: 20080601
  2. BOTOX [Suspect]
  3. SURGIDERM [Concomitant]

REACTIONS (4)
  - CELLULITIS [None]
  - FACE OEDEMA [None]
  - INFLUENZA LIKE ILLNESS [None]
  - INJECTION SITE OEDEMA [None]
